FAERS Safety Report 25759123 (Version 2)
Quarter: 2025Q4

REPORT INFORMATION
  Report Type: Spontaneous
  Country: CN (occurrence: CN)
  Receive Date: 20250904
  Receipt Date: 20251012
  Transmission Date: 20260119
  Serious: No
  Sender: SANOFI AVENTIS
  Company Number: CN-SANOFI-02504878

PATIENT
  Age: 70 Year
  Sex: Female

DRUGS (2)
  1. HYDROCHLOROTHIAZIDE\IRBESARTAN [Suspect]
     Active Substance: HYDROCHLOROTHIAZIDE\IRBESARTAN
     Indication: Hypertension
     Dosage: UNK
     Dates: start: 20250428
  2. NORVASC [Concomitant]
     Active Substance: AMLODIPINE BESYLATE
     Indication: Hypertension
     Dosage: UNK

REACTIONS (3)
  - Hypotension [Not Recovered/Not Resolved]
  - Blood pressure systolic increased [Unknown]
  - Off label use [Unknown]

NARRATIVE: CASE EVENT DATE: 20250101
